FAERS Safety Report 5448528-X (Version None)
Quarter: 2007Q3

REPORT INFORMATION
  Report Type: 
  Country: None (occurrence: None)
  Receive Date: 20070911
  Receipt Date: 20070828
  Transmission Date: 20080115
  Serious: Yes (Hospitalization)
  Sender: FDA-Public Use
  Company Number: GB-ELI_LILLY_AND_COMPANY-GB200708006885

PATIENT
  Age: 60 Year
  Sex: Female

DRUGS (3)
  1. EXENATIDE [Suspect]
     Dosage: 5 UG, UNK
     Dates: start: 20070101
  2. EXENATIDE [Suspect]
     Dosage: 10 UG, UNK
  3. METFORMIN HCL [Concomitant]

REACTIONS (4)
  - CELLULITIS [None]
  - CHOKING SENSATION [None]
  - DIARRHOEA [None]
  - ERUCTATION [None]
